FAERS Safety Report 26186031 (Version 1)
Quarter: 2025Q4

REPORT INFORMATION
  Report Type: Spontaneous
  Country: US (occurrence: None)
  Receive Date: 20251220
  Receipt Date: 20251220
  Transmission Date: 20260118
  Serious: Yes (Life-Threatening, Other)
  Sender: FDA-CTU
  Company Number: None

PATIENT
  Age: 38 Year
  Sex: Female
  Weight: 71.1 kg

DRUGS (1)
  1. SUBOXONE [Suspect]
     Active Substance: BUPRENORPHINE HYDROCHLORIDE\NALOXONE HYDROCHLORIDE
     Indication: Injury
     Dates: start: 20190202, end: 20231110

REACTIONS (9)
  - Blood cholesterol increased [None]
  - Blood triglycerides increased [None]
  - High density lipoprotein decreased [None]
  - Hyperlipidaemia [None]
  - Fluid retention [None]
  - Weight increased [None]
  - Pulmonary embolism [None]
  - Therapy interrupted [None]
  - Metabolic disorder [None]

NARRATIVE: CASE EVENT DATE: 20201129
